FAERS Safety Report 17601442 (Version 1)
Quarter: 2020Q1

REPORT INFORMATION
  Report Type: Spontaneous
  Country: US (occurrence: US)
  Receive Date: 20200331
  Receipt Date: 20200331
  Transmission Date: 20200409
  Serious: Yes (Hospitalization)
  Sender: FDA-Public Use
  Company Number: US-BEH-2020115125

PATIENT
  Sex: Female

DRUGS (1)
  1. HIZENTRA [Suspect]
     Active Substance: HUMAN IMMUNOGLOBULIN G
     Indication: BRONCHIECTASIS
     Dosage: 14 GRAM, QOW
     Route: 058
     Dates: start: 20190227

REACTIONS (3)
  - Urinary tract infection [Unknown]
  - Product use in unapproved indication [Unknown]
  - No adverse event [Unknown]
